FAERS Safety Report 11162640 (Version 1)
Quarter: 2015Q2

REPORT INFORMATION
  Report Type: Spontaneous
  Country: US (occurrence: US)
  Receive Date: 20150604
  Receipt Date: 20150604
  Transmission Date: 20150821
  Serious: No
  Sender: FDA-Public Use
  Company Number: US-SA-2014SA180126

PATIENT
  Sex: Female

DRUGS (2)
  1. LANTUS SOLOSTAR [Suspect]
     Active Substance: INSULIN GLARGINE
     Indication: DIABETES MELLITUS
     Dosage: START DATE: ABOUT 6 MONTHS AGO DOSE:20 UNIT(S)
     Route: 065
  2. SOLOSTAR [Concomitant]
     Active Substance: DEVICE
     Indication: DEVICE THERAPY
     Dosage: START DATE: ABOUT 6 MONTHS AGO

REACTIONS (1)
  - Visual acuity reduced [Unknown]
